FAERS Safety Report 23918235 (Version 1)
Quarter: 2024Q2

REPORT INFORMATION
  Report Type: Spontaneous
  Country: US (occurrence: US)
  Receive Date: 20240530
  Receipt Date: 20240530
  Transmission Date: 20240715
  Serious: Yes (Hospitalization, Other)
  Sender: FDA-Public Use
  Company Number: US-SPECGX-T202401197

PATIENT
  Age: 26 Year
  Sex: Male

DRUGS (1)
  1. METHADONE [Suspect]
     Active Substance: METHADONE HYDROCHLORIDE
     Indication: Drug dependence
     Dosage: UNK
     Route: 065

REACTIONS (9)
  - Stress cardiomyopathy [Unknown]
  - Unresponsive to stimuli [Unknown]
  - Drug withdrawal syndrome [Unknown]
  - Electrocardiogram QT prolonged [Unknown]
  - Cardiac arrest [Unknown]
  - Ventricular tachycardia [Unknown]
  - Agitation [Unknown]
  - Vomiting [Unknown]
  - Resuscitation [Unknown]
